FAERS Safety Report 5306822-7 (Version None)
Quarter: 2007Q2

REPORT INFORMATION
  Report Type: 
  Country: None (occurrence: None)
  Receive Date: 20070425
  Receipt Date: 20070416
  Transmission Date: 20071010
  Serious: Yes (Life-Threatening, Disabling)
  Sender: FDA-Public Use
  Company Number: IT-JNJFOC-20070404782

PATIENT
  Sex: Male

DRUGS (4)
  1. REOPRO [Suspect]
     Indication: ACUTE MYOCARDIAL INFARCTION
  2. HEPARIN [Concomitant]
  3. CLOPIDOGREL [Concomitant]
  4. ACETYLSALICYLIC ACID SRT [Concomitant]

REACTIONS (1)
  - ISCHAEMIC CEREBRAL INFARCTION [None]
